FAERS Safety Report 4517536-5 (Version None)
Quarter: 2004Q4

REPORT INFORMATION
  Report Type: 
  Country: None (occurrence: None)
  Receive Date: 20041203
  Receipt Date: 20041123
  Transmission Date: 20050328
  Serious: Yes (Death)
  Sender: FDA-Public Use
  Company Number: JP-ABBOTT-04P-087-0281479-00

PATIENT
  Sex: Male

DRUGS (9)
  1. CEFZON CAPSULE [Suspect]
     Indication: RESPIRATORY TRACT INFECTION
     Route: 048
     Dates: start: 20020928, end: 20020929
  2. CEFZON CAPSULE [Suspect]
  3. FRUCTLACT [Suspect]
     Indication: RESPIRATORY TRACT INFECTION
     Route: 041
     Dates: start: 20020928, end: 20020928
  4. METAMIZOLE SODIUM [Suspect]
     Indication: RESPIRATORY TRACT INFECTION
     Route: 041
     Dates: start: 20020928, end: 20020928
  5. METOCLOPRAMIDE [Suspect]
     Indication: RESPIRATORY TRACT INFECTION
     Route: 041
     Dates: start: 20020928, end: 20020928
  6. MINOCYCLINE HYDROCHLORIDE [Suspect]
     Indication: RESPIRATORY TRACT INFECTION
     Route: 041
     Dates: start: 20040928, end: 20040928
  7. BRUFEN [Suspect]
     Indication: RESPIRATORY TRACT INFECTION
     Route: 048
     Dates: start: 20020928, end: 20020929
  8. HUSCODE [Suspect]
     Indication: RESPIRATORY TRACT INFECTION
     Route: 048
     Dates: start: 20040928, end: 20040929
  9. METAMIZOLE SODIUM [Suspect]
     Route: 048
     Dates: start: 20040928, end: 20040929

REACTIONS (2)
  - HEPATITIS FULMINANT [None]
  - MULTI-ORGAN FAILURE [None]
